FAERS Safety Report 6343044-5 (Version None)
Quarter: 2009Q3

REPORT INFORMATION
  Report Type: 
  Country: None (occurrence: None)
  Receive Date: 20090908
  Receipt Date: 20090903
  Transmission Date: 20100115
  Serious: Yes (Hospitalization, Other)
  Sender: FDA-Public Use
  Company Number: FR-ROXANE LABORATORIES, INC.-2009-RO-00888RO

PATIENT
  Age: 80 Year
  Sex: Female

DRUGS (4)
  1. PREDNISONE TAB [Suspect]
     Indication: NEUROPSYCHIATRIC LUPUS
     Route: 048
  2. PREDNISONE TAB [Suspect]
     Dosage: 10 MG
     Route: 048
  3. LAMOTRIGINE [Suspect]
     Indication: EPILEPSY
     Dosage: 75 MG
  4. HYDROXYCHLOROQUINE SULFATE [Concomitant]
     Dosage: 400 MG

REACTIONS (9)
  - CORONARY ARTERY DISEASE [None]
  - DIABETES MELLITUS [None]
  - DRUG INEFFECTIVE [None]
  - NEUROPSYCHIATRIC LUPUS [None]
  - PERFORATED ULCER [None]
  - PERITONITIS [None]
  - PNEUMONIA HERPES VIRAL [None]
  - TUBERCULOSIS [None]
  - URINARY TRACT INFECTION [None]
